FAERS Safety Report 5752817-9 (Version None)
Quarter: 2008Q2

REPORT INFORMATION
  Report Type: 
  Country: None (occurrence: None)
  Receive Date: 20080529
  Receipt Date: 20080517
  Transmission Date: 20081010
  Serious: Yes (Other)
  Sender: FDA-Public Use
  Company Number: US-PFIZER INC-2008027946

PATIENT
  Sex: Female
  Weight: 68 kg

DRUGS (4)
  1. CHANTIX [Suspect]
     Indication: SMOKING CESSATION THERAPY
     Dates: start: 20080205, end: 20080404
  2. DEPAKOTE [Concomitant]
  3. ATIVAN [Concomitant]
     Indication: INSOMNIA
  4. RESTORIL [Concomitant]

REACTIONS (12)
  - ABNORMAL DREAMS [None]
  - ASTHENIA [None]
  - CRYING [None]
  - DYSPHAGIA [None]
  - EMOTIONAL DISORDER [None]
  - INSOMNIA [None]
  - IRRITABILITY [None]
  - JOINT INJURY [None]
  - MALAISE [None]
  - PHARYNGEAL OEDEMA [None]
  - ROAD TRAFFIC ACCIDENT [None]
  - VIRAL SINUSITIS [None]
